FAERS Safety Report 19816007 (Version 2)
Quarter: 2021Q3

REPORT INFORMATION
  Report Type: Spontaneous
  Country: DE (occurrence: DE)
  Receive Date: 20210910
  Receipt Date: 20210930
  Transmission Date: 20211014
  Serious: Yes (Other)
  Sender: FDA-Public Use
  Company Number: DE-TAKEDA-2021TUS054603

PATIENT
  Age: 59 Year
  Sex: Female
  Weight: 64 kg

DRUGS (2)
  1. KIOVIG [Suspect]
     Active Substance: HUMAN IMMUNOGLOBULIN G
     Indication: IMMUNODEFICIENCY
     Dosage: 100 MILLIGRAM PER MILLILITRE
     Route: 042
     Dates: start: 20210806
  2. EPOETIN ALFA [Concomitant]
     Active Substance: ERYTHROPOIETIN
     Route: 065

REACTIONS (3)
  - Dyspnoea [Unknown]
  - Lip discolouration [Unknown]
  - Tachycardia [Unknown]

NARRATIVE: CASE EVENT DATE: 20210806
